FAERS Safety Report 9714767 (Version 2)
Quarter: 2014Q1

REPORT INFORMATION
  Report Type: Spontaneous
  Country: US (occurrence: US)
  Receive Date: 20131126
  Receipt Date: 20140120
  Transmission Date: 20141002
  Serious: No
  Sender: FDA-Public Use
  Company Number: US-GILEAD-2013-0088714

PATIENT
  Sex: Female

DRUGS (5)
  1. LETAIRIS [Suspect]
     Indication: PULMONARY ARTERIAL HYPERTENSION
     Dosage: 10 MG, QD
     Route: 048
     Dates: start: 20131001
  2. LETAIRIS [Suspect]
     Indication: SYSTEMIC SCLEROSIS
  3. VELETRI [Concomitant]
  4. ADCIRCA [Concomitant]
  5. LYRICA [Concomitant]

REACTIONS (2)
  - Back pain [Unknown]
  - Dizziness [Unknown]
